FAERS Safety Report 5385767-0 (Version None)
Quarter: 2007Q3

REPORT INFORMATION
  Report Type: 
  Country: None (occurrence: None)
  Receive Date: 20070712
  Receipt Date: 20070704
  Transmission Date: 20080115
  Serious: Yes (Other)
  Sender: FDA-Public Use
  Company Number: GB-PFIZER INC-2007055442

PATIENT
  Age: 44 Year
  Sex: Male

DRUGS (3)
  1. LIPITOR [Suspect]
     Route: 048
  2. COMBIVIR [Concomitant]
  3. EFAVIRENZ [Concomitant]

REACTIONS (1)
  - NEPHROLITHIASIS [None]
